FAERS Safety Report 25333965 (Version 2)
Quarter: 2025Q2

REPORT INFORMATION
  Report Type: Spontaneous
  Country: FR (occurrence: FR)
  Receive Date: 20250520
  Receipt Date: 20250528
  Transmission Date: 20250717
  Serious: Yes (Death)
  Sender: RANBAXY
  Company Number: FR-SUN PHARMACEUTICAL INDUSTRIES LTD-2025RR-507901

PATIENT
  Age: 92 Year
  Sex: Female

DRUGS (2)
  1. ODOMZO [Suspect]
     Active Substance: SONIDEGIB
     Indication: Skin cancer
     Dosage: 200 MILLIGRAM, DAILY
     Route: 048
     Dates: start: 20250201, end: 20250504
  2. ODOMZO [Suspect]
     Active Substance: SONIDEGIB
     Route: 065

REACTIONS (1)
  - Death [Fatal]
